FAERS Safety Report 5877547-4 (Version None)
Quarter: 2008Q3

REPORT INFORMATION
  Report Type: 
  Country: None (occurrence: None)
  Receive Date: 20080911
  Receipt Date: 20080829
  Transmission Date: 20090109
  Serious: Yes (Hospitalization)
  Sender: FDA-Public Use
  Company Number: PHHY2008FI19467

PATIENT
  Sex: Female

DRUGS (3)
  1. ACLASTA [Suspect]
     Indication: OSTEOPOROSIS
     Dosage: UNK
     Dates: start: 20080601
  2. CALCICHEW-D3 [Concomitant]
     Route: 065
  3. ACETAMINOPHEN [Concomitant]
     Route: 065

REACTIONS (4)
  - ABDOMINAL PAIN [None]
  - BLOOD CALCIUM DECREASED [None]
  - C-REACTIVE PROTEIN INCREASED [None]
  - PYREXIA [None]
